FAERS Safety Report 23963354 (Version 7)
Quarter: 2024Q3

REPORT INFORMATION
  Report Type: Spontaneous
  Country: CZ (occurrence: CZ)
  Receive Date: 20240611
  Receipt Date: 20240923
  Transmission Date: 20241016
  Serious: Yes (Death)
  Sender: BIOGEN
  Company Number: CZ-BIOGEN-2024BI01268493

PATIENT
  Age: 11 Year
  Sex: Male

DRUGS (2)
  1. SPINRAZA [Suspect]
     Active Substance: NUSINERSEN
     Indication: Spinal muscular atrophy
     Route: 050
     Dates: start: 20190118, end: 20240405
  2. Vigantol [Concomitant]
     Indication: Product used for unknown indication
     Route: 050

REACTIONS (6)
  - Aspiration [Fatal]
  - Tonsillitis [Fatal]
  - Pulmonary oedema [Fatal]
  - Brain hypoxia [Fatal]
  - Brain oedema [Fatal]
  - Ileus paralytic [Fatal]

NARRATIVE: CASE EVENT DATE: 20240526
